FAERS Safety Report 5638134-6 (Version None)
Quarter: 2008Q1

REPORT INFORMATION
  Report Type: 
  Country: None (occurrence: None)
  Receive Date: 20080221
  Receipt Date: 20080208
  Transmission Date: 20080703
  Serious: Yes (Death, Other)
  Sender: FDA-Public Use
  Company Number: MC200800082

PATIENT
  Age: 85 Year
  Sex: Male

DRUGS (2)
  1. ANGIOMAX [Suspect]
     Indication: PERCUTANEOUS CORONARY INTERVENTION
     Dosage: 52.5 ML (5 MG/ML), BOLUS, IV BOLUS; 24.8 ML, (5MG/ML), HR, INTRAVENOUS
     Route: 040
     Dates: start: 20071218, end: 20071218
  2. ANGIOMAX [Suspect]
     Indication: PERCUTANEOUS CORONARY INTERVENTION
     Dosage: 52.5 ML (5 MG/ML), BOLUS, IV BOLUS; 24.8 ML, (5MG/ML), HR, INTRAVENOUS
     Route: 040
     Dates: start: 20071218, end: 20071218

REACTIONS (2)
  - HAEMORRHAGIC STROKE [None]
  - POST PROCEDURAL STROKE [None]
